FAERS Safety Report 6062735-7 (Version None)
Quarter: 2009Q1

REPORT INFORMATION
  Report Type: 
  Country: None (occurrence: None)
  Receive Date: 20090202
  Receipt Date: 20090202
  Transmission Date: 20090719
  Serious: Yes (Other)
  Sender: FDA-Public Use
  Company Number: None

PATIENT
  Age: 27 Year
  Sex: Male
  Weight: 68.0396 kg

DRUGS (2)
  1. SENSITIVE SKIN SUN BLOCK LOTION SPF30 NEUTROGENA [Suspect]
     Indication: PROPHYLAXIS
     Dosage: 4-5ML ONCE TOP, USED ONLY ONCE
     Route: 061
     Dates: start: 20090131, end: 20090131
  2. SENSITIVE SKIN SUN BLOCK LOTION SPF30 NEUTROGENA [Suspect]
     Indication: SUNBURN
     Dosage: 4-5ML ONCE TOP, USED ONLY ONCE
     Route: 061
     Dates: start: 20090131, end: 20090131

REACTIONS (4)
  - APPLICATION SITE IRRITATION [None]
  - APPLICATION SITE PAIN [None]
  - APPLICATION SITE RASH [None]
  - SKIN EXFOLIATION [None]
